FAERS Safety Report 8367446-0 (Version None)
Quarter: 2012Q2

REPORT INFORMATION
  Report Type: 
  Country: None (occurrence: None)
  Receive Date: 20120517
  Receipt Date: 20120206
  Transmission Date: 20120825
  Serious: No
  Sender: FDA-Public Use
  Company Number: US-GLAXOSMITHKLINE-A0964812A

PATIENT
  Age: 65 Year
  Sex: Male

DRUGS (8)
  1. CARVEDILOL [Concomitant]
  2. HYDROCODONE BITARTRATE [Concomitant]
  3. ASPIRIN [Concomitant]
  4. VOTRIENT [Suspect]
     Indication: RENAL CELL CARCINOMA
     Route: 048
     Dates: start: 20111101, end: 20120203
  5. PREDNISONE TAB [Concomitant]
  6. ZOLPIDEM [Concomitant]
  7. LORAZEPAM [Concomitant]
  8. LISINOPRIL [Concomitant]

REACTIONS (1)
  - DRUG INEFFECTIVE [None]
